FAERS Safety Report 17611305 (Version 1)
Quarter: 2020Q2

REPORT INFORMATION
  Report Type: Report from Study
  Country: US (occurrence: US)
  Receive Date: 20200401
  Receipt Date: 20200401
  Transmission Date: 20200713
  Serious: Yes (Other)
  Sender: FDA-Public Use
  Company Number: US-PFIZER INC-2019507430

PATIENT
  Age: 59 Year
  Sex: Female

DRUGS (3)
  1. IBRANCE [Suspect]
     Active Substance: PALBOCICLIB
     Dosage: 125 MG, CYCLIC (FOR 21 DAYS ON/7 DAYS OFF)
     Route: 048
     Dates: start: 20191118
  2. IBRANCE [Suspect]
     Active Substance: PALBOCICLIB
     Indication: BREAST CANCER FEMALE
     Dosage: 125 MG, CYCLIC (FOR 21 DAYS ON/7 DAYS OFF; 3 WEEKS AND 1 WEEK OFF WITH DAILY LETROZOLE)
     Route: 048
     Dates: start: 20191021, end: 2019
  3. LETROZOLE. [Concomitant]
     Active Substance: LETROZOLE
     Dosage: UNK, DAILY

REACTIONS (3)
  - White blood cell count decreased [Unknown]
  - Bone marrow failure [Unknown]
  - Blood count abnormal [Unknown]

NARRATIVE: CASE EVENT DATE: 2019
